FAERS Safety Report 4546472-3 (Version None)
Quarter: 2005Q1

REPORT INFORMATION
  Report Type: 
  Country: None (occurrence: None)
  Receive Date: 20050105
  Receipt Date: 20041221
  Transmission Date: 20050727
  Serious: Yes (Death, Hospitalization)
  Sender: FDA-Public Use
  Company Number: 2004AL000614

PATIENT
  Age: 64 Year
  Sex: Female

DRUGS (6)
  1. CHILDREN'S APAP ELIXIR (ACETAMINOPHEN) (ALPHARMA) [Suspect]
     Dosage: PO
     Route: 048
  2. INFANT'S APAP DROPS (ACETAMINOPHEN) (ALPHARMA) [Suspect]
     Dosage: PO
     Route: 048
  3. ETHANOL [Suspect]
     Dosage: PO
     Route: 048
  4. MONTELUKAST [Concomitant]
  5. VALDECOXIB [Concomitant]
  6. MULTI-VITAMINS [Concomitant]

REACTIONS (20)
  - ALANINE AMINOTRANSFERASE INCREASED [None]
  - ANURIA [None]
  - ASCITES [None]
  - ASPARTATE AMINOTRANSFERASE INCREASED [None]
  - BLOOD CREATINE INCREASED [None]
  - BLOOD CREATINE PHOSPHOKINASE INCREASED [None]
  - BLOOD ETHANOL INCREASED [None]
  - BLOOD LACTATE DEHYDROGENASE INCREASED [None]
  - BLOOD PRESSURE SYSTOLIC DECREASED [None]
  - COMA [None]
  - COMPLETED SUICIDE [None]
  - CONVULSION [None]
  - FLUID OVERLOAD [None]
  - HAEMATOCRIT DECREASED [None]
  - HYPOTENSION [None]
  - INTENTIONAL MISUSE [None]
  - INTERNATIONAL NORMALISED RATIO INCREASED [None]
  - PLATELET COUNT DECREASED [None]
  - PROTHROMBIN TIME PROLONGED [None]
  - TACHYCARDIA [None]
